FAERS Safety Report 5492152-X (Version None)
Quarter: 2007Q4

REPORT INFORMATION
  Report Type: 
  Country: None (occurrence: None)
  Receive Date: 20071018
  Receipt Date: 20071004
  Transmission Date: 20080405
  Serious: Yes (Hospitalization, Other)
  Sender: FDA-Public Use
  Company Number: 2007VX000964

PATIENT
  Age: 58 Year
  Sex: Female
  Weight: 51.7101 kg

DRUGS (8)
  1. INFERGEN [Suspect]
     Indication: HEPATITIS C
     Dosage: 9 UG; TIW; SC
     Route: 058
     Dates: start: 20061101, end: 20070315
  2. NORVASC [Concomitant]
  3. TOPROL-XL [Concomitant]
  4. DIOVAN [Concomitant]
  5. LASIX [Concomitant]
  6. SODIUM BICARBONATE [Concomitant]
  7. LEXAPRO [Concomitant]
  8. RENAGEL [Concomitant]

REACTIONS (13)
  - ARTHRALGIA [None]
  - CELLULITIS [None]
  - DELIRIUM [None]
  - FALL [None]
  - INFECTION [None]
  - INJECTION SITE INFECTION [None]
  - INJECTION SITE IRRITATION [None]
  - INJECTION SITE PAIN [None]
  - MUSCLE TWITCHING [None]
  - OVERDOSE [None]
  - PAIN [None]
  - PSYCHOTIC DISORDER [None]
  - SCAB [None]
